FAERS Safety Report 24347832 (Version 2)
Quarter: 2024Q3

REPORT INFORMATION
  Report Type: Spontaneous
  Country: US (occurrence: US)
  Receive Date: 20240922
  Receipt Date: 20240925
  Transmission Date: 20241016
  Serious: No
  Sender: ELI LILLY AND CO
  Company Number: US-ELI_LILLY_AND_COMPANY-US202409013396

PATIENT
  Age: 77 Year
  Sex: Female

DRUGS (1)
  1. FORTEO [Suspect]
     Active Substance: TERIPARATIDE
     Indication: Osteoporosis
     Dosage: 200 UG, UNKNOWN
     Route: 058
     Dates: end: 20240919

REACTIONS (5)
  - Myalgia [Recovered/Resolved]
  - Back pain [Unknown]
  - Off label use [Unknown]
  - Arthralgia [Recovered/Resolved]
  - Insomnia [Recovered/Resolved]
